FAERS Safety Report 5084061-5 (Version None)
Quarter: 2006Q3

REPORT INFORMATION
  Report Type: 
  Country: None (occurrence: None)
  Receive Date: 20060820
  Receipt Date: 20060718
  Transmission Date: 20061208
  Serious: Yes (Congenital Anomaly)
  Sender: FDA-Public Use
  Company Number: US-ABBOTT-06P-163-0338283-00

PATIENT
  Sex: Male
  Weight: 2.74 kg

DRUGS (4)
  1. KALETRA [Suspect]
     Indication: DRUG EXPOSURE DURING PREGNANCY
     Route: 065
  2. NEVIRAPINE [Suspect]
     Indication: DRUG EXPOSURE DURING PREGNANCY
     Route: 065
  3. LAMIVUDINE + ZIDOVUDINE [Suspect]
     Indication: DRUG EXPOSURE DURING PREGNANCY
     Route: 065
  4. ZIDOVUDINE [Suspect]
     Indication: DRUG EXPOSURE DURING PREGNANCY
     Route: 065

REACTIONS (2)
  - CYSTIC FIBROSIS [None]
  - PREMATURE BABY [None]
